FAERS Safety Report 8864112 (Version 1)
Quarter: 2012Q4

REPORT INFORMATION
  Report Type: 
  Country: US (occurrence: US)
  Receive Date: 20121024
  Receipt Date: 20121024
  Transmission Date: 20130627
  Serious: No
  Sender: FDA-Public Use
  Company Number: US-AMGEN-USASP2011065845

PATIENT
  Sex: Female
  Weight: 68.93 kg

DRUGS (16)
  1. ENBREL [Suspect]
     Indication: PRODUCT USED FOR UNKNOWN INDICATION
     Dosage: 50 mg, qwk
  2. LANSOPRAZOLE [Concomitant]
     Dosage: 30 mg, UNK
  3. CITALOPRAM [Concomitant]
     Dosage: 20 mg, UNK
  4. METHOTREXATE [Concomitant]
     Dosage: 25 mg, UNK
  5. ALBUTEROL                          /00139501/ [Concomitant]
  6. ATROVENT [Concomitant]
  7. CYCLOBENZAPRIN HCL [Concomitant]
     Dosage: 15 mg, UNK
  8. HYDROCODONE [Concomitant]
  9. FISH OIL [Concomitant]
  10. VITAMIN D /00107901/ [Concomitant]
  11. FOLIC ACID [Concomitant]
  12. LOSARTAN [Concomitant]
     Dosage: 25 mg, UNK
  13. METOPROLOL [Concomitant]
     Dosage: 25 mg, UNK
  14. PROVENTIL                          /00139501/ [Concomitant]
  15. ZOLPIDEM [Concomitant]
     Dosage: 12.5 mg, UNK
  16. ASPIRIN [Concomitant]
     Dosage: 81 mg, UNK

REACTIONS (2)
  - Rash [Unknown]
  - Pruritus [Unknown]
